FAERS Safety Report 9061484 (Version 2)
Quarter: 2013Q2

REPORT INFORMATION
  Report Type: Spontaneous
  Country: IT (occurrence: IT)
  Receive Date: 20130204
  Receipt Date: 20130408
  Transmission Date: 20140414
  Serious: Yes (Hospitalization)
  Sender: FDA-Public Use
  Company Number: IT-ELI_LILLY_AND_COMPANY-IT201212004844

PATIENT
  Age: 82 Year
  Sex: Male

DRUGS (5)
  1. HUMALOG LISPRO - NPL [Suspect]
     Indication: DIABETES MELLITUS
     Dosage: 7 U, BID
     Route: 058
     Dates: start: 20121128, end: 20121128
  2. SPIRIVA [Concomitant]
     Indication: CHRONIC OBSTRUCTIVE PULMONARY DISEASE
     Dosage: 1 DF, QD
     Route: 055
  3. ONBREZ [Concomitant]
     Indication: CHRONIC OBSTRUCTIVE PULMONARY DISEASE
     Dosage: 1 DF, QD
     Route: 055
  4. VENTOLIN                           /00139501/ [Concomitant]
     Indication: CHRONIC OBSTRUCTIVE PULMONARY DISEASE
     Dosage: UNK, PRN
  5. GLUCOPHAGE [Concomitant]
     Route: 048

REACTIONS (2)
  - Erythema multiforme [Recovering/Resolving]
  - Urticaria [Recovered/Resolved]
